FAERS Safety Report 13390289 (Version 1)
Quarter: 2017Q1

REPORT INFORMATION
  Report Type: Report from Study
  Country: IT (occurrence: IT)
  Receive Date: 20170331
  Receipt Date: 20170331
  Transmission Date: 20170429
  Serious: Yes (Hospitalization, Other)
  Sender: FDA-Public Use
  Company Number: PHHY2013IT040630

PATIENT
  Age: 20 Year
  Sex: Female
  Weight: 60 kg

DRUGS (3)
  1. SOLU-MEDROL [Interacting]
     Active Substance: METHYLPREDNISOLONE SODIUM SUCCINATE
     Indication: MULTIPLE SCLEROSIS
     Dosage: 1 G, UNK
     Route: 042
  2. GABAPENTIN TEVA [Concomitant]
     Active Substance: GABAPENTIN
     Indication: PARAESTHESIA
     Dosage: 200 MG, UNK
     Route: 048
     Dates: start: 20130107, end: 20130212
  3. GILENYA [Suspect]
     Active Substance: FINGOLIMOD HYDROCHLORIDE
     Indication: RELAPSING-REMITTING MULTIPLE SCLEROSIS
     Dosage: 0.5 MG, QD
     Route: 048
     Dates: start: 20121030, end: 20130222

REACTIONS (9)
  - Pain [Recovered/Resolved]
  - Skin infection [Unknown]
  - Herpes zoster [Recovered/Resolved]
  - Meningomyelitis herpes [Recovered/Resolved]
  - Rash vesicular [Recovered/Resolved]
  - CSF protein increased [Unknown]
  - Drug interaction [Unknown]
  - Skin lesion [Recovered/Resolved]
  - Herpes virus infection [Unknown]

NARRATIVE: CASE EVENT DATE: 20130212
